FAERS Safety Report 23353182 (Version 1)
Quarter: 2023Q4

REPORT INFORMATION
  Report Type: Spontaneous
  Country: US (occurrence: US)
  Receive Date: 20231230
  Receipt Date: 20231230
  Transmission Date: 20240110
  Serious: No
  Sender: FDA-Public Use
  Company Number: US-GSK-US2023AMR179801

PATIENT
  Sex: Female

DRUGS (1)
  1. VALACYCLOVIR [Suspect]
     Active Substance: VALACYCLOVIR HYDROCHLORIDE
     Indication: Retinitis viral
     Dosage: UNK

REACTIONS (4)
  - Balance disorder [Recovering/Resolving]
  - Gait inability [Recovering/Resolving]
  - Paraesthesia [Recovering/Resolving]
  - Influenza [Recovering/Resolving]
